FAERS Safety Report 25578659 (Version 3)
Quarter: 2025Q3

REPORT INFORMATION
  Report Type: Spontaneous
  Country: EU (occurrence: EU)
  Receive Date: 20250718
  Receipt Date: 20250924
  Transmission Date: 20251021
  Serious: Yes (Other)
  Sender: ELI LILLY AND COMPANY
  Company Number: EU-GSK-DE2025EME079257

PATIENT
  Age: 79 Year
  Sex: Male
  Weight: 83 kg

DRUGS (5)
  1. OLUMIANT [Suspect]
     Active Substance: BARICITINIB
     Indication: Dermatitis allergic
     Dosage: 2 MG, DAILY
     Route: 065
     Dates: start: 20210825, end: 20250612
  2. METFORMIN [Concomitant]
     Active Substance: METFORMIN HYDROCHLORIDE
     Indication: Diabetes mellitus
     Dosage: UNK, BID
     Dates: start: 2015
  3. DAPAGLIFLOZIN [Concomitant]
     Active Substance: DAPAGLIFLOZIN
     Indication: Diabetes mellitus
     Dosage: 10 MG, DAILY
     Dates: start: 2016
  4. ROSUVASTATIN [Concomitant]
     Active Substance: ROSUVASTATIN
     Indication: Product used for unknown indication
     Dosage: 20 MG, DAILY
     Dates: start: 2016
  5. CANDESARTAN [Concomitant]
     Active Substance: CANDESARTAN
     Indication: Hypertension
     Dosage: 32 MG, DAILY
     Dates: start: 2018

REACTIONS (3)
  - Vaccination failure [Unknown]
  - Post herpetic neuralgia [Not Recovered/Not Resolved]
  - Herpes zoster [Recovering/Resolving]

NARRATIVE: CASE EVENT DATE: 20250612
